FAERS Safety Report 6456594-8 (Version None)
Quarter: 2009Q4

REPORT INFORMATION
  Report Type: 
  Country: None (occurrence: None)
  Receive Date: 20091125
  Receipt Date: 20091116
  Transmission Date: 20100525
  Serious: Yes (Life-Threatening, Hospitalization)
  Sender: FDA-Public Use
  Company Number: KR-ASTRAZENECA-2009SE27759

PATIENT
  Age: 2 Year
  Sex: Female
  Weight: 14.3 kg

DRUGS (2)
  1. LIDOCAINE [Suspect]
     Indication: LOCAL ANAESTHESIA
     Dosage: 15 CC OF 1%
     Route: 058
  2. LIDOCAINE [Suspect]
     Dosage: 15 CC OF 2%
     Route: 058

REACTIONS (3)
  - DRUG TOXICITY [None]
  - GRAND MAL CONVULSION [None]
  - OVERDOSE [None]
